FAERS Safety Report 5703150-2 (Version None)
Quarter: 2008Q2

REPORT INFORMATION
  Report Type: 
  Country: None (occurrence: None)
  Receive Date: 20080411
  Receipt Date: 20080401
  Transmission Date: 20081010
  Serious: Yes (Other)
  Sender: FDA-Public Use
  Company Number: US-PFIZER INC-2008028724

PATIENT
  Sex: Female
  Weight: 59 kg

DRUGS (10)
  1. CELEBREX [Interacting]
     Indication: PAIN
     Route: 048
  2. CELEBREX [Interacting]
     Indication: RHEUMATOID ARTHRITIS
  3. CELEBREX [Interacting]
     Indication: FIBROMYALGIA
  4. CELEBREX [Interacting]
     Indication: SYSTEMIC LUPUS ERYTHEMATOSUS
  5. CELEBREX [Interacting]
     Indication: INFLAMMATION
  6. BEXTRA [Suspect]
     Indication: PAIN
  7. ANTIHYPERTENSIVES [Interacting]
     Indication: BLOOD PRESSURE
  8. DICYCLOMINE [Concomitant]
     Indication: GASTROINTESTINAL PAIN
  9. SPIRONOLACTONE [Concomitant]
  10. NORTRIPTYLINE HCL [Concomitant]

REACTIONS (7)
  - BLOOD PRESSURE ABNORMAL [None]
  - BLOOD URINE PRESENT [None]
  - DRUG INTERACTION [None]
  - OVERDOSE [None]
  - PAIN [None]
  - RENAL FAILURE [None]
  - SWELLING [None]
